FAERS Safety Report 4480983-4 (Version None)
Quarter: 2004Q4

REPORT INFORMATION
  Report Type: 
  Country: None (occurrence: None)
  Receive Date: 20041019
  Receipt Date: 20041019
  Transmission Date: 20050328
  Serious: Yes (Hospitalization)
  Sender: FDA-Public Use
  Company Number: None

PATIENT
  Age: 57 Year
  Sex: Male
  Weight: 79.8331 kg

DRUGS (7)
  1. SANDOSTATIN LAR [Suspect]
     Indication: RECTAL CANCER
     Dosage: IM X 1
     Route: 030
     Dates: start: 20041013
  2. ASPIRIN [Concomitant]
  3. BENTYL [Concomitant]
  4. LISINOPRIL [Concomitant]
  5. LOPRESSOR [Concomitant]
  6. PRANDIN [Concomitant]
  7. TIMOLOL MALEATE [Concomitant]

REACTIONS (1)
  - DIZZINESS [None]
